FAERS Safety Report 8432822-4 (Version None)
Quarter: 2012Q2

REPORT INFORMATION
  Report Type: 
  Country: None (occurrence: None)
  Receive Date: 20120323
  Receipt Date: 20110728
  Transmission Date: 20120825
  Serious: Yes (Other)
  Sender: FDA-Public Use
  Company Number: 163-21880-11071203

PATIENT
  Age: 73 Year
  Sex: Female

DRUGS (16)
  1. LEVOTHYROXINE SODIUM [Concomitant]
  2. CLONIDINE HCL (CLONIDINE HYDROCHLORIDE) [Concomitant]
  3. QUINIDINE (QUINIDINE) [Concomitant]
  4. VITAMIN D [Concomitant]
  5. REVLIMID [Suspect]
     Indication: MULTIPLE MYELOMA
     Dosage: 25 MG, DAILY X 21 DAYS, PO, 25 MG, DAILY X 21 DAYS, PO
     Route: 048
     Dates: start: 20110224, end: 20110701
  6. REVLIMID [Suspect]
     Indication: MULTIPLE MYELOMA
     Dosage: 25 MG, DAILY X 21 DAYS, PO, 25 MG, DAILY X 21 DAYS, PO
     Route: 048
     Dates: start: 20110718
  7. WELCHOL [Concomitant]
  8. MULTIVITAMIN [Concomitant]
  9. OXYCONTIN [Concomitant]
  10. DECADRON [Concomitant]
  11. ISOSORBIDE MONONITRATE [Concomitant]
  12. CARVEDILOL [Concomitant]
  13. HYDROCODONE-ACETAMINO[HEN (VICODIN) [Concomitant]
  14. PRILOSEC [Concomitant]
  15. PROCHLORPERAZINE MALEATE (PROCHLORPERAZINE MALEATE) [Concomitant]
  16. PROCRIT [Concomitant]

REACTIONS (2)
  - FULL BLOOD COUNT DECREASED [None]
  - DEEP VEIN THROMBOSIS [None]
